FAERS Safety Report 16894769 (Version 8)
Quarter: 2020Q3

REPORT INFORMATION
  Report Type: Spontaneous
  Country: US (occurrence: US)
  Receive Date: 20191008
  Receipt Date: 20200814
  Transmission Date: 20201102
  Serious: Yes (Other)
  Sender: FDA-Public Use
  Company Number: US-PFIZER INC-2019434307

PATIENT
  Age: 78 Year
  Sex: Female

DRUGS (1)
  1. CELEBREX [Suspect]
     Active Substance: CELECOXIB
     Indication: ARTHRITIS
     Dosage: UNK

REACTIONS (12)
  - Arthralgia [Unknown]
  - Rib fracture [Unknown]
  - Fall [Unknown]
  - Road traffic accident [Unknown]
  - Head injury [Unknown]
  - Neck pain [Unknown]
  - Skin atrophy [Unknown]
  - Intentional product misuse [Unknown]
  - Hand fracture [Unknown]
  - Pain [Unknown]
  - Foot fracture [Unknown]
  - Bladder disorder [Unknown]
